FAERS Safety Report 5713416-8 (Version None)
Quarter: 2008Q2

REPORT INFORMATION
  Report Type: 
  Country: None (occurrence: None)
  Receive Date: 20080422
  Receipt Date: 20080410
  Transmission Date: 20081010
  Serious: Yes (Hospitalization)
  Sender: FDA-Public Use
  Company Number: EG-PFIZER INC-2008032402

PATIENT
  Age: 54 Year
  Sex: Female

DRUGS (1)
  1. FARMORUBICIN [Suspect]
     Indication: BREAST CANCER
     Route: 042

REACTIONS (4)
  - ANAEMIA [None]
  - BONE MARROW FAILURE [None]
  - BONE PAIN [None]
  - LEUKOPENIA [None]
